FAERS Safety Report 13208396 (Version 1)
Quarter: 2017Q1

REPORT INFORMATION
  Report Type: Spontaneous
  Country: IL (occurrence: IL)
  Receive Date: 20170209
  Receipt Date: 20170209
  Transmission Date: 20170428
  Serious: Yes (Other)
  Sender: FDA-Public Use
  Company Number: IL-BAUSCH-BL-2015-014184

PATIENT
  Age: 5 Year
  Sex: Male

DRUGS (2)
  1. CYCLOPENTOLATE. [Suspect]
     Active Substance: CYCLOPENTOLATE
     Indication: HYPERMETROPIA
  2. CYCLOPENTOLATE. [Suspect]
     Active Substance: CYCLOPENTOLATE
     Indication: VISUAL IMPAIRMENT
     Route: 065

REACTIONS (2)
  - Drug hypersensitivity [Unknown]
  - Generalised tonic-clonic seizure [Unknown]
